FAERS Safety Report 8163727-4 (Version None)
Quarter: 2012Q1

REPORT INFORMATION
  Report Type: 
  Country: None (occurrence: None)
  Receive Date: 20120224
  Receipt Date: 20120220
  Transmission Date: 20120608
  Serious: Yes (Other)
  Sender: FDA-Public Use
  Company Number: GB-ABBOTT-12P-167-0906606-00

PATIENT
  Age: 42 Year
  Sex: Female

DRUGS (2)
  1. HUMIRA [Suspect]
     Indication: PRODUCT USED FOR UNKNOWN INDICATION
     Dosage: LOADING DOSE
     Dates: start: 20120101, end: 20120101
  2. HUMIRA [Suspect]
     Dates: end: 20120201

REACTIONS (4)
  - CHEST DISCOMFORT [None]
  - CONFUSIONAL STATE [None]
  - PALPITATIONS [None]
  - FEELING ABNORMAL [None]
